FAERS Safety Report 8782930 (Version 1)
Quarter: 2012Q4

REPORT INFORMATION
  Report Type: 
  Country: US (occurrence: US)
  Receive Date: 20120913
  Receipt Date: 20120913
  Transmission Date: 20130627
  Serious: No
  Sender: FDA-Public Use
  Company Number: US-ASTRAZENECA-2012SE65626

PATIENT
  Age: 57 Year
  Sex: Female

DRUGS (30)
  1. NEXIUM [Suspect]
     Indication: GASTROOESOPHAGEAL REFLUX DISEASE
     Route: 048
     Dates: start: 20090206
  2. VIMOVO [Concomitant]
  3. CYCLOBENZAPRINE [Concomitant]
     Indication: MUSCLE SPASMS
  4. FLEXERIL [Concomitant]
     Indication: MUSCLE SPASMS
  5. ZYRTEC [Concomitant]
     Indication: HYPERSENSITIVITY
  6. ZYRTEC [Concomitant]
     Indication: ASTHMA
  7. SINGULAIR [Concomitant]
     Indication: ASTHMA
  8. ALLERGY RELIEF [Concomitant]
     Indication: HYPERSENSITIVITY
  9. ADVAIR [Concomitant]
     Indication: ASTHMA
  10. XOPENEX HFA [Concomitant]
     Indication: ASTHMA
  11. VICODIN [Concomitant]
     Indication: BACK PAIN
  12. HYDROCO [Concomitant]
     Indication: BACK PAIN
  13. APAP [Concomitant]
     Indication: BACK PAIN
  14. NORTRIPTYLINE [Concomitant]
     Indication: NEURALGIA
  15. NORTRIPTYLINE [Concomitant]
     Indication: MIGRAINE
  16. PAMELOR [Concomitant]
     Indication: NEURALGIA
  17. PAMELOR [Concomitant]
     Indication: MIGRAINE
  18. PREMARIN [Concomitant]
     Indication: HORMONE THERAPY
  19. LEVOTHYROXINE [Concomitant]
     Indication: HORMONE THERAPY
  20. SYNTHROID [Concomitant]
     Indication: HORMONE THERAPY
  21. CLONAZEPAM [Concomitant]
     Indication: ANXIETY
  22. CLONAZEPAM [Concomitant]
     Indication: PAIN
  23. CITALOPRAM [Concomitant]
     Indication: ANXIETY
  24. CELEXA [Concomitant]
     Indication: ANXIETY
  25. CENTRUM [Concomitant]
     Indication: VITAMIN SUPPLEMENTATION
  26. CALCIUM PLUS [Concomitant]
     Indication: VITAMIN SUPPLEMENTATION
  27. MAGNESIUM [Concomitant]
     Indication: VITAMIN SUPPLEMENTATION
  28. POTASSIUM [Concomitant]
     Indication: VITAMIN SUPPLEMENTATION
  29. B COMPLETE [Concomitant]
     Indication: VITAMIN SUPPLEMENTATION
  30. OSTERO BI FLEX [Concomitant]
     Indication: VITAMIN SUPPLEMENTATION

REACTIONS (2)
  - Headache [Unknown]
  - Intentional drug misuse [Unknown]
